FAERS Safety Report 21763758 (Version 2)
Quarter: 2022Q4

REPORT INFORMATION
  Report Type: Report from Study
  Country: ZA (occurrence: ZA)
  Receive Date: 20221222
  Receipt Date: 20221228
  Transmission Date: 20230113
  Serious: Yes (Other)
  Sender: FDA-Public Use
  Company Number: ZA-CELLTRION INC.-2022ZA021243

PATIENT

DRUGS (12)
  1. INFLIXIMAB [Suspect]
     Active Substance: INFLIXIMAB
     Indication: Ankylosing spondylitis
     Dosage: 500MG INTRAVENOUS INFUSIONS AT 8 WEEKLY INTERVALS
     Route: 042
     Dates: start: 20210329
  2. INFLIXIMAB [Suspect]
     Active Substance: INFLIXIMAB
     Dosage: 500MG INTRAVENOUS INFUSIONS AT 8 WEEKLY INTERVALS
     Route: 042
     Dates: start: 20210504
  3. INFLIXIMAB [Suspect]
     Active Substance: INFLIXIMAB
     Dosage: 500MG INTRAVENOUS INFUSIONS AT 8 WEEKLY INTERVALS
     Route: 042
     Dates: start: 20210615
  4. INFLIXIMAB [Suspect]
     Active Substance: INFLIXIMAB
     Dosage: 500MG INTRAVENOUS INFUSIONS AT 8 WEEKLY INTERVALS
     Route: 042
     Dates: start: 20210812
  5. INFLIXIMAB [Suspect]
     Active Substance: INFLIXIMAB
     Dosage: 500MG INTRAVENOUS INFUSIONS AT 8 WEEKLY INTERVALS
     Route: 042
     Dates: start: 20211007
  6. INFLIXIMAB [Suspect]
     Active Substance: INFLIXIMAB
     Dosage: 500MG INTRAVENOUS INFUSIONS AT 8 WEEKLY INTERVALS
     Route: 042
     Dates: start: 20211202
  7. INFLIXIMAB [Suspect]
     Active Substance: INFLIXIMAB
     Dosage: 500MG INTRAVENOUS INFUSIONS AT 8 WEEKLY INTERVALS
     Route: 042
     Dates: start: 20220203
  8. INFLIXIMAB [Suspect]
     Active Substance: INFLIXIMAB
     Dosage: 500MG INTRAVENOUS INFUSIONS AT 8 WEEKLY INTERVALS
     Route: 042
     Dates: start: 20220331
  9. INFLIXIMAB [Suspect]
     Active Substance: INFLIXIMAB
     Dosage: 500MG INTRAVENOUS INFUSIONS AT 8 WEEKLY INTERVALS
     Route: 042
     Dates: start: 20220526
  10. INFLIXIMAB [Suspect]
     Active Substance: INFLIXIMAB
     Dosage: 500MG INTRAVENOUS INFUSIONS AT 8 WEEKLY INTERVALS
     Route: 042
     Dates: start: 20220810
  11. INFLIXIMAB [Suspect]
     Active Substance: INFLIXIMAB
     Dosage: 500MG INTRAVENOUS INFUSIONS AT 8 WEEKLY INTERVALS
     Route: 042
     Dates: start: 20221026
  12. INFLIXIMAB [Suspect]
     Active Substance: INFLIXIMAB
     Dosage: 500MG INTRAVENOUS INFUSIONS AT 8 WEEKLY INTERVALS
     Route: 042
     Dates: start: 20221221

REACTIONS (2)
  - Ankylosing spondylitis [Recovered/Resolved]
  - Off label use [Unknown]

NARRATIVE: CASE EVENT DATE: 20221208
